FAERS Safety Report 5022037-4 (Version None)
Quarter: 2006Q2

REPORT INFORMATION
  Report Type: 
  Country: None (occurrence: None)
  Receive Date: 20060605
  Receipt Date: 20060525
  Transmission Date: 20061013
  Serious: Yes (Hospitalization, Other)
  Sender: FDA-Public Use
  Company Number: 2006-04-1841

PATIENT
  Age: 51 Year
  Sex: Female
  Weight: 81.6475 kg

DRUGS (9)
  1. INTRON A [Suspect]
     Indication: HEPATITIS C
     Dosage: 3 MIU TIW SUBCUTANEOUS
     Route: 058
     Dates: end: 20050601
  2. RIBAVIRIN [Suspect]
     Indication: HEPATITIS C
     Dosage: ORAL
     Route: 048
     Dates: end: 20050601
  3. EPOETIN ALPHA [Concomitant]
  4. NEUPOGEN [Concomitant]
  5. FOLATE [Concomitant]
  6. PYRIDOXINE HCL [Concomitant]
  7. CALCIUM GLUCONATE [Concomitant]
  8. PRILOSEC [Concomitant]
  9. IRON [Concomitant]

REACTIONS (6)
  - CONDITION AGGRAVATED [None]
  - HAEMORRHAGE [None]
  - HEPATITIS C [None]
  - MYELODYSPLASTIC SYNDROME [None]
  - PANCYTOPENIA [None]
  - THERAPY NON-RESPONDER [None]
